FAERS Safety Report 9320332 (Version 1)
Quarter: 2013Q2

REPORT INFORMATION
  Report Type: Spontaneous
  Country: US (occurrence: US)
  Receive Date: 20130530
  Receipt Date: 20130530
  Transmission Date: 20140414
  Serious: Yes (Hospitalization)
  Sender: FDA-Public Use
  Company Number: US-B.I. PHARMACEUTICALS,INC./RIDGEFIELD-2013-BI-13980BP

PATIENT
  Age: 71 Year
  Sex: Female
  Weight: 51 kg

DRUGS (11)
  1. PRADAXA [Suspect]
     Indication: ATRIAL FIBRILLATION
     Dosage: 300 MG
     Route: 048
     Dates: start: 201112, end: 201204
  2. PRADAXA [Suspect]
     Dosage: 300 MG
     Route: 048
     Dates: start: 201206
  3. REQUIP [Concomitant]
     Indication: RESTLESS LEGS SYNDROME
     Dosage: 2 MG
     Route: 048
     Dates: start: 2009
  4. LEXAPRO [Concomitant]
     Indication: ANXIETY
     Dosage: 10 MG
     Route: 048
     Dates: start: 2007
  5. LEXAPRO [Concomitant]
     Indication: DEPRESSION
  6. BUSPAR [Concomitant]
     Indication: ANXIETY
     Dosage: 5 MG
     Route: 048
     Dates: start: 201304
  7. KLONOPIN [Concomitant]
     Indication: ANXIETY
     Dosage: 0.5 MG
     Route: 048
     Dates: start: 201304
  8. SOTALOL [Concomitant]
     Indication: ATRIAL FIBRILLATION
     Dosage: 160 MG
     Route: 048
     Dates: start: 201111
  9. LASIX [Concomitant]
     Indication: CARDIAC FAILURE
     Dosage: 20 MG
     Route: 048
     Dates: start: 201111
  10. POTASSIUM [Concomitant]
     Indication: BLOOD POTASSIUM DECREASED
     Dosage: 20 MEQ
     Route: 048
     Dates: start: 201111
  11. SYNTHROID [Concomitant]
     Indication: HYPOTHYROIDISM
     Dosage: 0.075 MG
     Route: 048
     Dates: start: 1993

REACTIONS (2)
  - Mitral valve disease [Recovered/Resolved]
  - Tricuspid valve disease [Recovered/Resolved]
